FAERS Safety Report 7345547 (Version 2)
Quarter: 2013Q4

REPORT INFORMATION
  Report Type: Spontaneous
  Country: ES (occurrence: ES)
  Receive Date: 20100406
  Receipt Date: 20131023
  Transmission Date: 20140711
  Serious: Yes (Hospitalization, Other)
  Sender: FDA-Public Use
  Company Number: ES-ROCHE-694016

PATIENT
  Age: 66 Year
  Sex: Female

DRUGS (8)
  1. CAPECITABINE [Suspect]
     Indication: BREAST CANCER
     Dosage: FOR 14 DAYS, REPEATED ON DAY 22
     Route: 048
  2. CAPECITABINE [Interacting]
     Dosage: DOSAGE REDUCED
     Route: 048
  3. CAPECITABINE [Interacting]
     Dosage: DOSE REDUCED
     Route: 048
  4. BRIVUDINE [Interacting]
     Indication: HERPES ZOSTER
     Route: 065
  5. OMEPRAZOLE [Concomitant]
     Indication: DYSPEPSIA
     Route: 065
  6. DOXORUBICIN [Concomitant]
     Dosage: FOUR CYCLES
     Route: 042
  7. CYCLOPHOSPHAMIDE [Concomitant]
     Dosage: FOUR CYCLES
     Route: 042
  8. DOCETAXEL [Concomitant]
     Dosage: 60 MIN. FOUR CYCLES
     Route: 042

REACTIONS (14)
  - Stomatitis [Recovered/Resolved]
  - Pharyngeal inflammation [Recovered/Resolved]
  - Neutropenia [Recovered/Resolved]
  - Thrombocytopenia [Recovered/Resolved]
  - Melaena [Recovered/Resolved]
  - Abdominal pain [Unknown]
  - Pyrexia [Recovered/Resolved]
  - Bone marrow failure [Recovered/Resolved]
  - Anaemia [Recovered/Resolved]
  - Palmar-plantar erythrodysaesthesia syndrome [Recovered/Resolved]
  - Palmar-plantar erythrodysaesthesia syndrome [Recovered/Resolved]
  - Onycholysis [Unknown]
  - Tooth discolouration [Unknown]
  - Drug interaction [Unknown]
